FAERS Safety Report 10149579 (Version 1)
Quarter: 2014Q2

REPORT INFORMATION
  Report Type: Spontaneous
  Country: US (occurrence: US)
  Receive Date: 20140502
  Receipt Date: 20140502
  Transmission Date: 20141212
  Serious: No
  Sender: FDA-Public Use
  Company Number: US-PFIZER INC-2014121118

PATIENT
  Age: 61 Year
  Sex: Male
  Weight: 83.9 kg

DRUGS (2)
  1. PREGABALIN [Suspect]
     Indication: NEURALGIA
     Dosage: UNK, 3X/DAY
     Dates: end: 2014
  2. DYAZIDE [Concomitant]
     Indication: HYPERTENSION
     Dosage: UNK, DAILY

REACTIONS (1)
  - Drug ineffective [Unknown]
